FAERS Safety Report 6656385-9 (Version None)
Quarter: 2010Q1

REPORT INFORMATION
  Report Type: 
  Country: None (occurrence: None)
  Receive Date: 20100329
  Receipt Date: 20100324
  Transmission Date: 20100710
  Serious: Yes (Other)
  Sender: FDA-Public Use
  Company Number: JP-JNJCH-2010007177

PATIENT
  Sex: Female

DRUGS (1)
  1. COOL MINT LISTERINE [Suspect]
     Indication: DENTAL DISORDER PROPHYLAXIS
     Dosage: TEXT:UNKNOWN
     Route: 048

REACTIONS (2)
  - AGEUSIA [None]
  - INCORRECT DRUG ADMINISTRATION DURATION [None]
